FAERS Safety Report 25470297 (Version 2)
Quarter: 2025Q2

REPORT INFORMATION
  Report Type: Spontaneous
  Country: JP (occurrence: JP)
  Receive Date: 20250623
  Receipt Date: 20250627
  Transmission Date: 20250717
  Serious: Yes (Hospitalization)
  Sender: SANOFI AVENTIS
  Company Number: JP-SA-2025SA157261

PATIENT
  Age: 15 Year
  Sex: Female

DRUGS (5)
  1. DUPIXENT [Suspect]
     Active Substance: DUPILUMAB
     Indication: Urticaria chronic
     Route: 058
     Dates: start: 20250512, end: 20250512
  2. DUPIXENT [Suspect]
     Active Substance: DUPILUMAB
     Route: 058
     Dates: start: 20250526, end: 20250526
  3. FAMOTIDINE [Concomitant]
     Active Substance: FAMOTIDINE
     Indication: Urticaria chronic
     Dosage: 10 MG, BID
     Route: 048
     Dates: start: 20250321
  4. MONTELUKAST OD [Concomitant]
     Indication: Urticaria chronic
     Dosage: 10 MG, QD
     Route: 048
     Dates: start: 20250428, end: 20250525
  5. DESLORATADINE [Concomitant]
     Active Substance: DESLORATADINE
     Indication: Urticaria chronic
     Dosage: 5 MG, QD
     Route: 048
     Dates: start: 20250428

REACTIONS (3)
  - Feeling abnormal [Recovering/Resolving]
  - Nausea [Recovering/Resolving]
  - Headache [Recovering/Resolving]

NARRATIVE: CASE EVENT DATE: 20250512
